FAERS Safety Report 11636855 (Version 1)
Quarter: 2015Q4

REPORT INFORMATION
  Report Type: Spontaneous
  Country: DE (occurrence: DE)
  Receive Date: 20151016
  Receipt Date: 20151016
  Transmission Date: 20160304
  Serious: Yes (Life-Threatening, Hospitalization)
  Sender: FDA-Public Use
  Company Number: DE-BAYER-2015-436655

PATIENT
  Age: 36 Year
  Sex: Female

DRUGS (1)
  1. MIRENA [Suspect]
     Active Substance: LEVONORGESTREL
     Indication: CONTRACEPTION
     Dosage: 20 MCG/24HR, CONT
     Route: 015
     Dates: start: 20150730, end: 20150830

REACTIONS (15)
  - Vomiting [Recovered/Resolved]
  - Pyrexia [Recovered/Resolved]
  - Uterine disorder [None]
  - Pyometra [Recovered/Resolved]
  - Headache [Recovered/Resolved]
  - Tachycardia [Recovered/Resolved]
  - Decreased appetite [None]
  - Neck pain [Recovered/Resolved]
  - Hypotension [Recovered/Resolved]
  - Bacterial sepsis [Recovered/Resolved]
  - Back pain [None]
  - Vaginal haemorrhage [Recovered/Resolved]
  - Malaise [Recovered/Resolved]
  - Fluid intake reduced [None]
  - Abdominal pain upper [None]

NARRATIVE: CASE EVENT DATE: 201508
